FAERS Safety Report 12950610 (Version 1)
Quarter: 2016Q4

REPORT INFORMATION
  Report Type: Spontaneous
  Country: US (occurrence: US)
  Receive Date: 20161117
  Receipt Date: 20161117
  Transmission Date: 20170207
  Serious: No
  Sender: FDA-Public Use
  Company Number: US-SHIRE-US201616230

PATIENT
  Sex: Female

DRUGS (3)
  1. RESTORE [Concomitant]
     Active Substance: GLYCERIN
     Indication: DRY EYE
     Dosage: 3.5 G, 1X/DAY:QD
     Route: 047
     Dates: start: 2016
  2. ARTIFICIAL TEARS                   /00222401/ [Concomitant]
     Indication: DRY EYE
     Dosage: UNK, AS REQ^D
     Route: 047
     Dates: start: 2016
  3. XIIDRA [Suspect]
     Active Substance: LIFITEGRAST
     Indication: DRY EYE
     Dosage: 1 GTT (EACH EYE), 2X/DAY:BID
     Route: 047
     Dates: start: 20161024

REACTIONS (3)
  - Instillation site reaction [Not Recovered/Not Resolved]
  - Visual impairment [Unknown]
  - Instillation site pain [Not Recovered/Not Resolved]

NARRATIVE: CASE EVENT DATE: 20161024
